FAERS Safety Report 8478577-9 (Version None)
Quarter: 2012Q2

REPORT INFORMATION
  Report Type: 
  Country: None (occurrence: None)
  Receive Date: 20120629
  Receipt Date: 20120221
  Transmission Date: 20120825
  Serious: Yes (Hospitalization)
  Sender: FDA-Public Use
  Company Number: US-NOVOPROD-345584

PATIENT
  Age: 55 Year
  Sex: Male
  Weight: 117.9 kg

DRUGS (7)
  1. METOPROLOL SUCCINATE [Concomitant]
     Indication: HYPERTENSION
     Dosage: 100 MG, BID
     Dates: start: 20080502
  2. LIPITOR [Concomitant]
     Indication: HYPERLIPIDAEMIA
     Dosage: 40 MG, QD
     Dates: start: 20041228
  3. BENICAR [Concomitant]
     Indication: HYPERTENSION
     Dosage: 40 MG, QD
     Dates: start: 20080502
  4. VICTOZA [Suspect]
     Indication: TYPE 2 DIABETES MELLITUS
     Dosage: 1.8 MG, QD
     Route: 058
     Dates: start: 20111026
  5. PLAVIX [Concomitant]
     Indication: CORONARY ARTERY DISEASE
     Dosage: 75 MG, QD
     Dates: start: 20080502
  6. IDEG PDS290 [Suspect]
     Indication: TYPE 2 DIABETES MELLITUS
     Dosage: 78 U, QD
     Route: 058
     Dates: start: 20111026
  7. METFORMIN HCL [Concomitant]
     Indication: TYPE 2 DIABETES MELLITUS
     Dosage: 2000 MG, QD
     Dates: start: 20070102

REACTIONS (2)
  - NON-CARDIAC CHEST PAIN [None]
  - GASTROOESOPHAGEAL REFLUX DISEASE [None]
